FAERS Safety Report 15576238 (Version 1)
Quarter: 2018Q4

REPORT INFORMATION
  Report Type: Spontaneous
  Country: HR (occurrence: HR)
  Receive Date: 20181101
  Receipt Date: 20181101
  Transmission Date: 20190205
  Serious: Yes (Other)
  Sender: FDA-Public Use
  Company Number: HR-TEVA-2018-HR-970858

PATIENT
  Sex: Female

DRUGS (1)
  1. PRAXITEN 15 [Suspect]
     Active Substance: OXAZEPAM
     Dosage: 750 MILLIGRAM DAILY;
     Route: 048
     Dates: start: 201809

REACTIONS (5)
  - Somnolence [Unknown]
  - Intentional overdose [Unknown]
  - Suicide attempt [Unknown]
  - Confusional state [Unknown]
  - Loss of consciousness [Unknown]

NARRATIVE: CASE EVENT DATE: 201809
